FAERS Safety Report 8594179-8 (Version None)
Quarter: 2012Q3

REPORT INFORMATION
  Report Type: 
  Country: None (occurrence: None)
  Receive Date: 20120814
  Receipt Date: 20120719
  Transmission Date: 20120928
  Serious: Yes (Hospitalization, Other)
  Sender: FDA-Public Use
  Company Number: JP-ABBOTT-12P-087-0958163-00

PATIENT
  Sex: Female
  Weight: 1.4 kg

DRUGS (2)
  1. VALPROIC ACID [Suspect]
     Indication: PRODUCT USED FOR UNKNOWN INDICATION
  2. FLUVOXAMINE MALEATE [Suspect]
     Indication: PRODUCT USED FOR UNKNOWN INDICATION

REACTIONS (5)
  - WITHDRAWAL SYNDROME [None]
  - NEONATAL RESPIRATORY DEPRESSION [None]
  - FOETAL EXPOSURE DURING PREGNANCY [None]
  - TREMOR [None]
  - HYPOTONIA NEONATAL [None]
